FAERS Safety Report 5246005-2 (Version None)
Quarter: 2007Q1

REPORT INFORMATION
  Report Type: 
  Country: None (occurrence: None)
  Receive Date: 20070220
  Receipt Date: 20070209
  Transmission Date: 20070707
  Serious: Yes (Death)
  Sender: FDA-Public Use
  Company Number: 2007-00325

PATIENT
  Age: 77 Year
  Sex: Female
  Weight: 76 kg

DRUGS (3)
  1. VELCADE [Suspect]
     Indication: MULTIPLE MYELOMA
     Dosage: 1.30 MG, UNK, INTRAVENOUS
     Route: 042
     Dates: start: 20070116, end: 20070202
  2. THALIDOMIDE [Suspect]
     Indication: MULTIPLE MYELOMA
     Dosage: 100.00 MG, UNK, ORAL
     Route: 048
     Dates: start: 20070116, end: 20070208
  3. PREDNISONE [Suspect]
     Indication: MULTIPLE MYELOMA

REACTIONS (1)
  - SUDDEN DEATH [None]
